FAERS Safety Report 18225035 (Version 1)
Quarter: 2020Q3

REPORT INFORMATION
  Report Type: Spontaneous
  Country: JP (occurrence: JP)
  Receive Date: 20200903
  Receipt Date: 20200903
  Transmission Date: 20201103
  Serious: Yes (Other)
  Sender: FDA-Public Use
  Company Number: JP-SAKK-2020SA228089AA

PATIENT

DRUGS (3)
  1. TAXOTERE [Suspect]
     Active Substance: DOCETAXEL
     Indication: BREAST CANCER
     Dosage: UNK UNK, Q3W
     Route: 041
     Dates: start: 202006, end: 202008
  2. DEXART [Concomitant]
     Active Substance: DEXAMETHASONE SODIUM PHOSPHATE
     Indication: BREAST CANCER
     Route: 065
  3. CYCLOPHOSPHAMIDE MONOHYDRATE [Concomitant]
     Active Substance: CYCLOPHOSPHAMIDE
     Indication: BREAST CANCER
     Dosage: UNK
     Route: 065
     Dates: start: 202006

REACTIONS (4)
  - Macular oedema [Unknown]
  - Posterior capsule opacification [Unknown]
  - Visual acuity reduced [Unknown]
  - Lacrimation increased [Unknown]

NARRATIVE: CASE EVENT DATE: 202007
